FAERS Safety Report 7601863-9 (Version None)
Quarter: 2011Q3

REPORT INFORMATION
  Report Type: 
  Country: None (occurrence: None)
  Receive Date: 20110711
  Receipt Date: 20110707
  Transmission Date: 20111222
  Serious: Yes (Disabling, Other)
  Sender: FDA-Public Use
  Company Number: US-VERTEX PHARMACEUTICALS INC.-AE-2011-000397

PATIENT
  Sex: Male
  Weight: 79.5 kg

DRUGS (9)
  1. B VITAMIN COMPLEX [Concomitant]
     Indication: NUTRITIONAL SUPPORT
  2. VX-950 [Suspect]
     Indication: HEPATITIS C
     Route: 048
     Dates: start: 20110504, end: 20110630
  3. TYLENOL-500 [Concomitant]
     Indication: HEADACHE
  4. SERTRALINE HYDROCHLORIDE [Concomitant]
     Dates: start: 20110518
  5. RIBAVIRIN [Suspect]
     Indication: HEPATITIS C
     Dates: start: 20110504, end: 20110620
  6. ONDANSETRON [Concomitant]
     Indication: NAUSEA
     Dates: start: 20110506
  7. RIBAVIRIN [Suspect]
     Dates: start: 20110621
  8. PEGINTERFERON ALFA-2A [Suspect]
     Indication: HEPATITIS C
     Route: 058
     Dates: start: 20110504
  9. LOVAZA [Concomitant]
     Indication: NUTRITIONAL SUPPORT

REACTIONS (1)
  - MUSCULAR WEAKNESS [None]
